FAERS Safety Report 11493190 (Version 1)
Quarter: 2015Q3

REPORT INFORMATION
  Report Type: Spontaneous
  Country: US (occurrence: US)
  Receive Date: 20150911
  Receipt Date: 20150911
  Transmission Date: 20151125
  Serious: Yes (Other)
  Sender: FDA-Public Use
  Company Number: US-ROCHE-1034075

PATIENT
  Sex: Female

DRUGS (6)
  1. RIBASPHERE [Suspect]
     Active Substance: RIBAVIRIN
     Indication: CHRONIC HEPATITIS C
     Route: 065
  2. ZOLOFT [Concomitant]
     Active Substance: SERTRALINE HYDROCHLORIDE
  3. TRAMADOL. [Concomitant]
     Active Substance: TRAMADOL
  4. PEGASYS [Suspect]
     Active Substance: PEGINTERFERON ALFA-2A
     Indication: CHRONIC HEPATITIS C
     Route: 065
  5. BACLOFEN. [Concomitant]
     Active Substance: BACLOFEN
  6. NAPROSYN [Concomitant]
     Active Substance: NAPROXEN

REACTIONS (6)
  - Hypertension [Unknown]
  - Nausea [Unknown]
  - Red blood cell count decreased [Unknown]
  - Dizziness [Unknown]
  - Injection site bruising [Unknown]
  - Decreased appetite [Unknown]
